FAERS Safety Report 6177851-9 (Version None)
Quarter: 2009Q2

REPORT INFORMATION
  Report Type: 
  Country: None (occurrence: None)
  Receive Date: 20090501
  Receipt Date: 20090501
  Transmission Date: 20091009
  Serious: Yes (Hospitalization)
  Sender: FDA-Public Use
  Company Number: None

PATIENT
  Sex: Female
  Weight: 76.6 kg

DRUGS (3)
  1. TAXOTERE [Suspect]
     Indication: BREAST CANCER
     Dosage: 75 MG/M2 EVERY 3 WEEK IV
     Route: 042
     Dates: start: 20090422
  2. ADRIAMYCIN RDF [Suspect]
     Indication: BREAST CANCER
     Dosage: 50MG/M2 EVERY 3 WEEKS IV
     Route: 042
     Dates: start: 20090422
  3. CYTOXAN [Concomitant]

REACTIONS (6)
  - COUGH [None]
  - DIARRHOEA [None]
  - FEBRILE NEUTROPENIA [None]
  - HAEMOPTYSIS [None]
  - OROPHARYNGEAL PAIN [None]
  - VOMITING [None]
